FAERS Safety Report 8417601-6 (Version None)
Quarter: 2012Q2

REPORT INFORMATION
  Report Type: 
  Country: None (occurrence: None)
  Receive Date: 20120606
  Receipt Date: 20120530
  Transmission Date: 20120825
  Serious: Yes (Hospitalization)
  Sender: FDA-Public Use
  Company Number: JP-B.I. PHARMACEUTICALS,INC./RIDGEFIELD-2012-BP-07453NB

PATIENT
  Age: 82 Year
  Sex: Female

DRUGS (6)
  1. CLEANAL [Concomitant]
     Indication: BRONCHIECTASIS
     Route: 065
  2. ERYTHROMYCIN [Concomitant]
     Indication: BRONCHIECTASIS
     Route: 065
  3. RHEUMATREX [Suspect]
     Indication: RHEUMATOID ARTHRITIS
     Route: 065
  4. MOBIC [Suspect]
     Indication: RHEUMATOID ARTHRITIS
     Route: 048
  5. MEDICON [Concomitant]
     Indication: BRONCHIECTASIS
     Route: 065
  6. ZOLPIDEM [Concomitant]
     Indication: INSOMNIA
     Route: 065

REACTIONS (3)
  - PLEURISY [None]
  - HAEMOGLOBIN DECREASED [None]
  - BLOOD IRON DECREASED [None]
